FAERS Safety Report 24398958 (Version 4)
Quarter: 2025Q4

REPORT INFORMATION
  Report Type: Spontaneous
  Country: US (occurrence: US)
  Receive Date: 20241004
  Receipt Date: 20251112
  Transmission Date: 20260118
  Serious: Yes (Other)
  Sender: BRISTOL-MYERS SQUIBB COMPANY
  Company Number: US-BRISTOL-MYERS SQUIBB COMPANY-2024-157052

PATIENT
  Age: 76 Year
  Sex: Male
  Weight: 65.32 kg

DRUGS (35)
  1. POMALYST [Suspect]
     Active Substance: POMALIDOMIDE
     Indication: Plasma cell myeloma
     Route: 048
  2. POMALYST [Suspect]
     Active Substance: POMALIDOMIDE
     Route: 048
  3. POMALYST [Suspect]
     Active Substance: POMALIDOMIDE
     Route: 048
  4. Acyclovir Oral [Concomitant]
     Indication: Product used for unknown indication
     Route: 048
  5. Bactrim DS Oral [Concomitant]
     Indication: Product used for unknown indication
     Route: 048
  6. Calcipotriene External Cream [Concomitant]
     Indication: Product used for unknown indication
  7. Calcium Oral [Concomitant]
     Indication: Product used for unknown indication
     Route: 048
  8. Cephalexin Oral [Concomitant]
     Indication: Product used for unknown indication
     Route: 048
  9. Cetirizine HCI Oral [Concomitant]
     Indication: Product used for unknown indication
     Route: 048
  10. CIPROFLOXACIN HYDROCHLORIDE [Concomitant]
     Active Substance: CIPROFLOXACIN HYDROCHLORIDE
     Indication: Product used for unknown indication
  11. Colestid Oral [Concomitant]
     Indication: Product used for unknown indication
     Route: 048
  12. CYANOCOBALAMIN [Concomitant]
     Active Substance: CYANOCOBALAMIN
     Indication: Product used for unknown indication
  13. Desonide External Cream [Concomitant]
     Indication: Product used for unknown indication
  14. DEXAMETHASONE [Concomitant]
     Active Substance: DEXAMETHASONE
     Indication: Product used for unknown indication
     Route: 048
  15. DOXYCYCLINE HYCLATE [Concomitant]
     Active Substance: DOXYCYCLINE HYCLATE
     Indication: Product used for unknown indication
  16. Eliquis Oral [Concomitant]
     Indication: Product used for unknown indication
     Route: 048
  17. FLONASE ALLERGY RELIEF [Concomitant]
     Active Substance: FLUTICASONE PROPIONATE
     Indication: Product used for unknown indication
  18. Lasix Oral [Concomitant]
     Indication: Product used for unknown indication
     Route: 048
  19. LEVOTHYROXINE SODIUM [Concomitant]
     Active Substance: LEVOTHYROXINE SODIUM
     Indication: Product used for unknown indication
  20. Lyrica Oral [Concomitant]
     Indication: Product used for unknown indication
     Route: 048
  21. MEGESTROL ACETATE [Concomitant]
     Active Substance: MEGESTROL ACETATE
     Indication: Product used for unknown indication
  22. METOPROLOL SUCCINATE [Concomitant]
     Active Substance: METOPROLOL SUCCINATE
     Indication: Product used for unknown indication
     Dosage: METOPROLOL SUCCINATE ER
  23. MUCINEX DM MAXIMUM STRENGTH [Concomitant]
     Active Substance: DEXTROMETHORPHAN HYDROBROMIDE\GUAIFENESIN
     Indication: Product used for unknown indication
  24. Multivitamin Oral [Concomitant]
     Indication: Product used for unknown indication
     Route: 048
  25. Omeprazole Oral [Concomitant]
     Indication: Product used for unknown indication
     Route: 048
  26. Os-Cal Calcium + D3 Oral [Concomitant]
     Indication: Product used for unknown indication
     Route: 048
  27. Pentoxifylline ER Oral [Concomitant]
     Indication: Product used for unknown indication
     Route: 048
  28. Peridex Mouth/Throat Solution [Concomitant]
     Indication: Product used for unknown indication
  29. Pravastatin Sodium Oral [Concomitant]
     Indication: Product used for unknown indication
     Route: 048
  30. REFRESH PLUS [Concomitant]
     Active Substance: CARBOXYMETHYLCELLULOSE SODIUM
     Indication: Product used for unknown indication
     Route: 047
  31. Sildenafil Citrate Oral [Concomitant]
     Indication: Product used for unknown indication
     Route: 048
  32. TIAZANDINE [Concomitant]
     Indication: Product used for unknown indication
  33. Triamcinolone Acetonide External [Concomitant]
     Indication: Product used for unknown indication
  34. Venlafaxine HCI ER [Concomitant]
     Indication: Product used for unknown indication
  35. Vitamin B-12 Oral [Concomitant]
     Indication: Product used for unknown indication
     Route: 048

REACTIONS (7)
  - Hyperkalaemia [Unknown]
  - Product dose omission issue [Unknown]
  - White blood cell count decreased [Unknown]
  - COVID-19 [Unknown]
  - Fatigue [Not Recovered/Not Resolved]
  - Irritability [Not Recovered/Not Resolved]
  - Decreased appetite [Not Recovered/Not Resolved]

NARRATIVE: CASE EVENT DATE: 20240907
